FAERS Safety Report 13601799 (Version 1)
Quarter: 2017Q2

REPORT INFORMATION
  Report Type: Spontaneous
  Country: US (occurrence: US)
  Receive Date: 20170601
  Receipt Date: 20170601
  Transmission Date: 20170830
  Serious: No
  Sender: FDA-Public Use
  Company Number: US-BAUSCH-BL-2016-011208

PATIENT
  Age: 81 Year
  Sex: Female

DRUGS (7)
  1. ELIDEL [Suspect]
     Active Substance: PIMECROLIMUS
     Indication: SKIN DISORDER
     Route: 061
     Dates: start: 2016
  2. DULERA [Concomitant]
     Active Substance: FORMOTEROL FUMARATE DIHYDRATE\MOMETASONE FUROATE
     Indication: ASTHMA
     Dosage: 2 PUFFS
     Route: 048
     Dates: start: 201602
  3. MONTELUKAST [Concomitant]
     Active Substance: MONTELUKAST SODIUM
     Indication: ASTHMA
     Route: 048
  4. LEVOTHYROXINE. [Concomitant]
     Active Substance: LEVOTHYROXINE
     Indication: THYROID THERAPY
     Dosage: 75 MG AND 50 MG EVERY ALTERNATE DAY
     Route: 048
  5. VITAMINS AND SUPPLEMENTS (UNSPECIFIED) [Suspect]
     Active Substance: MINERALS\VITAMINS
     Indication: VITAMIN SUPPLEMENTATION
  6. ATORVASTATIN [Concomitant]
     Active Substance: ATORVASTATIN
     Indication: BLOOD CHOLESTEROL INCREASED
     Route: 048
  7. VITAMINS AND SUPPLEMENTS (UNSPECIFIED) [Suspect]
     Active Substance: MINERALS\VITAMINS
     Indication: MINERAL SUPPLEMENTATION
     Dosage: DAILY
     Route: 048

REACTIONS (2)
  - Off label use [Unknown]
  - Treatment noncompliance [Unknown]

NARRATIVE: CASE EVENT DATE: 2016
